FAERS Safety Report 9630881 (Version 1)
Quarter: 2013Q4

REPORT INFORMATION
  Report Type: Report from Study
  Country: CA (occurrence: CA)
  Receive Date: 20131018
  Receipt Date: 20131018
  Transmission Date: 20140711
  Serious: Yes (Other)
  Sender: FDA-Public Use
  Company Number: CA-JNJFOC-20131008020

PATIENT
  Age: 36 Year
  Sex: Female

DRUGS (2)
  1. SIMPONI [Suspect]
     Indication: ANKYLOSING SPONDYLITIS
     Route: 058
     Dates: start: 20120129
  2. NAPROXEN [Concomitant]
     Route: 048
     Dates: start: 20130108

REACTIONS (3)
  - Carpal tunnel syndrome [Unknown]
  - Pyrexia [Unknown]
  - Pain [Unknown]
